FAERS Safety Report 8087304-9 (Version None)
Quarter: 2012Q1

REPORT INFORMATION
  Report Type: 
  Country: None (occurrence: None)
  Receive Date: 20120128
  Receipt Date: 20110513
  Transmission Date: 20120608
  Serious: No
  Sender: FDA-Public Use
  Company Number: US-ABBOTT-11P-163-0725964-00

PATIENT
  Sex: Female
  Weight: 61.29 kg

DRUGS (7)
  1. VASOTEC [Concomitant]
     Indication: HYPERTENSION
  2. PLAQUENIL [Concomitant]
     Indication: PSORIATIC ARTHROPATHY
  3. LASIX [Concomitant]
     Indication: ABDOMINAL DISTENSION
  4. HUMIRA [Suspect]
     Indication: PSORIATIC ARTHROPATHY
     Dates: start: 20101201
  5. IBUPROFEN [Concomitant]
     Indication: PAIN
  6. FISH OIL [Concomitant]
     Indication: VITAMIN SUPPLEMENTATION
  7. POTASSIUM [Concomitant]
     Indication: MINERAL SUPPLEMENTATION

REACTIONS (2)
  - PSORIASIS [None]
  - ALOPECIA [None]
